FAERS Safety Report 5578188-9 (Version None)
Quarter: 2007Q4

REPORT INFORMATION
  Report Type: 
  Country: None (occurrence: None)
  Receive Date: 20071231
  Receipt Date: 20071219
  Transmission Date: 20080405
  Serious: Yes (Other)
  Sender: FDA-Public Use
  Company Number: BR-PFIZER INC-2006102612

PATIENT
  Sex: Female

DRUGS (5)
  1. SOLU-MEDROL [Suspect]
     Indication: MULTIPLE SCLEROSIS
     Route: 042
  2. TIZANIDINE HCL [Concomitant]
  3. ALL OTHER THERAPEUTIC PRODUCTS [Concomitant]
  4. VITAMIN B-12 [Concomitant]
     Route: 048
  5. RISPERIDONE [Concomitant]
     Route: 048

REACTIONS (16)
  - BLOOD PRESSURE INCREASED [None]
  - CHILLS [None]
  - COLOUR BLINDNESS [None]
  - DIZZINESS [None]
  - DRUG INEFFECTIVE [None]
  - DYSGEUSIA [None]
  - ERYTHEMA [None]
  - EUPHORIC MOOD [None]
  - GAIT DISTURBANCE [None]
  - INSOMNIA [None]
  - NAUSEA [None]
  - OEDEMA PERIPHERAL [None]
  - PARAESTHESIA [None]
  - PYREXIA [None]
  - TACHYCARDIA [None]
  - URINARY INCONTINENCE [None]
